FAERS Safety Report 8957316 (Version 1)
Quarter: 2012Q4

REPORT INFORMATION
  Report Type: Spontaneous
  Country: GB (occurrence: None)
  Receive Date: 20121130
  Receipt Date: 20121130
  Transmission Date: 20130627
  Serious: Yes (Disabling)
  Sender: FDA-Public Use
  Company Number: 1500863

PATIENT
  Age: 94 Year
  Sex: Female

DRUGS (4)
  1. PAMIDRONIC ACID [Suspect]
     Indication: OSTEOPOROSIS
     Route: 042
     Dates: end: 20121001
  2. (PREDNISOLONE ACTATE) [Concomitant]
  3. ADCAL D3 [Concomitant]
  4. OMEPRAZOLE SODIUM [Concomitant]

REACTIONS (3)
  - Joint swelling [None]
  - Rales [None]
  - Myalgia [None]
